FAERS Safety Report 12848914 (Version 2)
Quarter: 2016Q4

REPORT INFORMATION
  Report Type: Report from Study
  Country: PH (occurrence: PH)
  Receive Date: 20161014
  Receipt Date: 20161116
  Transmission Date: 20170207
  Serious: Yes (Hospitalization)
  Sender: FDA-Public Use
  Company Number: PH-B.I. PHARMACEUTICALS,INC./RIDGEFIELD-2015-BI-55866BI

PATIENT
  Age: 69 Year
  Sex: Male
  Weight: 39.5 kg

DRUGS (12)
  1. CLOPIDOGREL [Concomitant]
     Active Substance: CLOPIDOGREL BISULFATE
     Indication: ANTIPLATELET THERAPY
     Dosage: STRENGTH: 75MG
     Route: 048
     Dates: start: 20151229
  2. BUDESONIDE. [Concomitant]
     Active Substance: BUDESONIDE
     Indication: CHRONIC OBSTRUCTIVE PULMONARY DISEASE
     Dosage: TURBOHALER
     Route: 055
     Dates: start: 20160108
  3. BUDESONIDE. [Concomitant]
     Active Substance: BUDESONIDE
     Indication: STEROID THERAPY
     Route: 055
     Dates: start: 20150923
  4. SALBUTAMOL [Concomitant]
     Active Substance: ALBUTEROL
     Dosage: CO-RESCUE INHALER
     Route: 055
     Dates: start: 20160108
  5. ASPIRIN. [Concomitant]
     Active Substance: ASPIRIN
     Indication: ANTIPLATELET THERAPY
     Dosage: STRENGTH: 80 MG
     Route: 048
     Dates: start: 20151229
  6. DOXYCYCLINE. [Concomitant]
     Active Substance: DOXYCYCLINE
     Indication: CHRONIC OBSTRUCTIVE PULMONARY DISEASE
     Dosage: STRENGTH: 400MG
     Route: 048
     Dates: start: 20151229
  7. BLINDED TIOTROPIUM BROMIDE+OLODATEROL [Suspect]
     Active Substance: OLODATEROL HYDROCHLORIDE\TIOTROPIUM BROMIDE MONOHYDRATE
     Route: 050
     Dates: start: 20160108
  8. BISOPROLOL [Concomitant]
     Active Substance: BISOPROLOL
     Indication: DRUG THERAPY
     Dosage: STRENGTH: 2.5MG
     Route: 048
     Dates: start: 20151229
  9. GLIMEPIRIDE + METFORMIN [Concomitant]
     Indication: PRODUCT USED FOR UNKNOWN INDICATION
     Dosage: SOLOSAMET
     Route: 065
     Dates: start: 2012
  10. BLINDED TIOTROPIUM BROMIDE+OLODATEROL [Suspect]
     Active Substance: OLODATEROL HYDROCHLORIDE\TIOTROPIUM BROMIDE MONOHYDRATE
     Indication: CHRONIC OBSTRUCTIVE PULMONARY DISEASE
     Route: 050
     Dates: start: 20150923
  11. BLINDED TIOTROPIUM BROMIDE+OLODATEROL [Suspect]
     Active Substance: OLODATEROL HYDROCHLORIDE\TIOTROPIUM BROMIDE MONOHYDRATE
     Route: 050
     Dates: start: 20151209
  12. SALBUTAMOL [Concomitant]
     Active Substance: ALBUTEROL
     Indication: DRUG THERAPY
     Route: 055
     Dates: start: 20150923

REACTIONS (17)
  - Electrolyte imbalance [Recovered/Resolved]
  - Myocardial infarction [Recovered/Resolved]
  - Pulmonary sepsis [Recovered/Resolved]
  - Chronic obstructive pulmonary disease [Not Recovered/Not Resolved]
  - Pneumonia [Recovered/Resolved]
  - Acute respiratory failure [Recovered/Resolved]
  - Chronic obstructive pulmonary disease [Recovered/Resolved]
  - Pneumothorax [Recovered/Resolved]
  - Acute myocardial infarction [Recovered/Resolved]
  - Cardiac failure congestive [Recovered/Resolved]
  - Hypoalbuminaemia [Recovered/Resolved]
  - Rhinitis [Recovered/Resolved]
  - Pleural effusion [Recovered/Resolved]
  - Bronchitis [Recovered/Resolved]
  - Pneumonia [Recovered/Resolved]
  - Hypoalbuminaemia [Recovered/Resolved]
  - Arrhythmia [Recovered/Resolved]

NARRATIVE: CASE EVENT DATE: 20151007
